FAERS Safety Report 17237108 (Version 11)
Quarter: 2020Q2

REPORT INFORMATION
  Report Type: Spontaneous
  Country: US (occurrence: US)
  Receive Date: 20200106
  Receipt Date: 20200423
  Transmission Date: 20200713
  Serious: Yes (Hospitalization, Other)
  Sender: FDA-Public Use
  Company Number: US-PFIZER INC-2019550913

PATIENT
  Age: 65 Year
  Sex: Female
  Weight: 107 kg

DRUGS (6)
  1. IBRANCE [Suspect]
     Active Substance: PALBOCICLIB
     Indication: BREAST CANCER METASTATIC
     Dosage: 125 MG, ONCE DAILY
     Route: 048
     Dates: start: 20180915, end: 2020
  2. LETROZOLE. [Concomitant]
     Active Substance: LETROZOLE
     Dosage: 2.5 MG, DAILY
     Route: 048
  3. LACTOSE [Suspect]
     Active Substance: LACTOSE
     Dosage: UNK
  4. IBRANCE [Suspect]
     Active Substance: PALBOCICLIB
     Dosage: 125 MG, ONCE DAILY
     Route: 048
     Dates: start: 2020, end: 2020
  5. IBRANCE [Suspect]
     Active Substance: PALBOCICLIB
     Dosage: 125 MG, CYCLIC (DAILY 21 DAYS AND OFF FOR 7 DAYS)
     Route: 048
     Dates: start: 2020
  6. GELATIN [Suspect]
     Active Substance: GELATIN
     Dosage: UNK

REACTIONS (7)
  - Drug hypersensitivity [Unknown]
  - Allergic reaction to excipient [Unknown]
  - Pleural effusion [Recovered/Resolved]
  - Neoplasm progression [Unknown]
  - White blood cell count decreased [Not Recovered/Not Resolved]
  - Oropharyngeal discomfort [Recovered/Resolved]
  - Toothache [Unknown]

NARRATIVE: CASE EVENT DATE: 202001
